FAERS Safety Report 6867258-0 (Version None)
Quarter: 2010Q2

REPORT INFORMATION
  Report Type: 
  Country: None (occurrence: None)
  Receive Date: 20100528
  Receipt Date: 20100426
  Transmission Date: 20101027
  Serious: No
  Sender: FDA-Public Use
  Company Number: 2010027533

PATIENT
  Age: 64 Year
  Sex: Female
  Weight: 97 kg

DRUGS (4)
  1. TOVIAZ [Suspect]
     Indication: HYPERTONIC BLADDER
     Dosage: 4 MG, 1X/DAY, ORAL
     Route: 048
     Dates: start: 20100106
  2. INDERAL [Suspect]
     Indication: HYPERTENSION
     Dosage: 160 MG, 1X/DAY, ORAL
     Route: 048
  3. BUMEX [Suspect]
     Indication: HYPERTENSION
     Dosage: 1 MG, 1X/DAY, ORAL
     Route: 048
  4. VALSARTAN [Suspect]
     Indication: HYPERTENSION
     Dosage: 160 MG, 1X/DAY, ORAL
     Route: 048

REACTIONS (4)
  - CARBON DIOXIDE DECREASED [None]
  - DRUG EFFECT DECREASED [None]
  - HAEMATOCRIT DECREASED [None]
  - MEAN CELL HAEMOGLOBIN INCREASED [None]
